FAERS Safety Report 13532299 (Version 1)
Quarter: 2017Q2

REPORT INFORMATION
  Report Type: Report from Study
  Country: None (occurrence: US)
  Receive Date: 20170510
  Receipt Date: 20170510
  Transmission Date: 20170830
  Serious: Yes (Other)
  Sender: FDA-Public Use
  Company Number: US-ABBVIE-17K-163-1963625-00

PATIENT
  Age: 54 Year
  Sex: Female

DRUGS (2)
  1. HUMIRA [Suspect]
     Active Substance: ADALIMUMAB
     Route: 058
     Dates: start: 2016
  2. HUMIRA [Suspect]
     Active Substance: ADALIMUMAB
     Indication: RHEUMATOID ARTHRITIS
     Route: 058
     Dates: start: 2013, end: 2016

REACTIONS (14)
  - Mobility decreased [Not Recovered/Not Resolved]
  - Dry eye [Unknown]
  - Musculoskeletal stiffness [Not Recovered/Not Resolved]
  - Tenderness [Not Recovered/Not Resolved]
  - Hip fracture [Unknown]
  - Joint swelling [Not Recovered/Not Resolved]
  - Eosinophil count increased [Unknown]
  - Joint stiffness [Not Recovered/Not Resolved]
  - Arthralgia [Not Recovered/Not Resolved]
  - Crystal urine present [Unknown]
  - Urinary sediment present [Unknown]
  - White blood cells urine positive [Unknown]
  - Osteoarthritis [Recovered/Resolved]
  - Body height decreased [Not Recovered/Not Resolved]

NARRATIVE: CASE EVENT DATE: 201510
